FAERS Safety Report 4695548-9 (Version None)
Quarter: 2005Q2

REPORT INFORMATION
  Report Type: 
  Country: None (occurrence: None)
  Receive Date: 20050523
  Receipt Date: 20050224
  Transmission Date: 20051028
  Serious: Yes (Other)
  Sender: FDA-Public Use
  Company Number: 2005CG00429

PATIENT
  Age: 924 Month
  Sex: Female
  Weight: 70 kg

DRUGS (2)
  1. ARIMIDEX [Suspect]
     Indication: BREAST CANCER
     Route: 048
     Dates: start: 20040601, end: 20050201
  2. RADIOTHERAPY [Concomitant]
     Indication: BREAST CANCER
     Dates: start: 20040101

REACTIONS (2)
  - PERIPHLEBITIS [None]
  - THROMBOPHLEBITIS SUPERFICIAL [None]
